FAERS Safety Report 16897805 (Version 1)
Quarter: 2019Q4

REPORT INFORMATION
  Report Type: Spontaneous
  Country: PT (occurrence: PT)
  Receive Date: 20191009
  Receipt Date: 20191009
  Transmission Date: 20200122
  Serious: Yes (Other)
  Sender: FDA-Public Use
  Company Number: PT-TEVA-2019-PT-1118472

PATIENT
  Age: 29 Year
  Sex: Female

DRUGS (3)
  1. ARIPIPRAZOLE. [Interacting]
     Active Substance: ARIPIPRAZOLE
     Indication: DELUSION
     Dosage: 2.5 MILLIGRAM DAILY; INITIALLY CONTINUED WITH OLANZAPINE
     Route: 048
  2. ARIPIPRAZOLE. [Interacting]
     Active Substance: ARIPIPRAZOLE
     Dosage: 20 MILLIGRAM DAILY; AFTER OLANZAPINE WAS DISCONTINUED
     Route: 048
  3. OLANZAPINE. [Suspect]
     Active Substance: OLANZAPINE
     Indication: DELUSION
     Dosage: 20 MILLIGRAM DAILY; THE WOMAN HAD BEEN TAKING OLANZAPINE FOR MORE THAN 24 WEEKS
     Route: 048

REACTIONS (4)
  - Hyperprolactinaemia [Recovered/Resolved]
  - Delusion of reference [Recovered/Resolved]
  - Drug interaction [Recovered/Resolved]
  - Hallucination, olfactory [Unknown]

NARRATIVE: CASE EVENT DATE: 2017
